FAERS Safety Report 5896781-0 (Version None)
Quarter: 2008Q3

REPORT INFORMATION
  Report Type: 
  Country: None (occurrence: None)
  Receive Date: 20080924
  Receipt Date: 20080613
  Transmission Date: 20090109
  Serious: Yes (Other)
  Sender: FDA-Public Use
  Company Number: US-ASTRAZENECA-2007UW27803

PATIENT
  Age: 41 Year
  Sex: Female
  Weight: 95.3 kg

DRUGS (5)
  1. SEROQUEL [Suspect]
     Indication: BIPOLAR DISORDER
     Dosage: VARIOUS (INCLUDING BUT NOT LIMITED TO 100MG, 300MG)
     Route: 048
     Dates: start: 19960101, end: 20061101
  2. SEROQUEL [Suspect]
     Indication: DEPRESSION
     Dosage: VARIOUS (INCLUDING BUT NOT LIMITED TO 100MG, 300MG)
     Route: 048
     Dates: start: 19960101, end: 20061101
  3. RISPERDAL [Concomitant]
  4. ZYPREXA [Concomitant]
  5. DEPAKOTE [Concomitant]

REACTIONS (4)
  - CEREBROVASCULAR ACCIDENT [None]
  - DIABETES MELLITUS [None]
  - ILL-DEFINED DISORDER [None]
  - SUICIDAL IDEATION [None]
